FAERS Safety Report 17269406 (Version 1)
Quarter: 2020Q1

REPORT INFORMATION
  Report Type: Report from Study
  Country: EG (occurrence: EG)
  Receive Date: 20200114
  Receipt Date: 20200114
  Transmission Date: 20200409
  Serious: Yes (Hospitalization, Other)
  Sender: FDA-Public Use
  Company Number: NVSC2020EG002726

PATIENT
  Age: 29 Year
  Sex: Male

DRUGS (2)
  1. GLIVEC [Suspect]
     Active Substance: IMATINIB MESYLATE
     Indication: CHRONIC MYELOID LEUKAEMIA
     Dosage: 100 MG, QD
     Route: 048
     Dates: start: 2013
  2. GLIVEC [Suspect]
     Active Substance: IMATINIB MESYLATE
     Dosage: 400 MG, QD
     Route: 048
     Dates: start: 2013

REACTIONS (11)
  - Infection [Recovered/Resolved]
  - Lip haemorrhage [Not Recovered/Not Resolved]
  - Hypoaesthesia [Recovered/Resolved]
  - Chapped lips [Not Recovered/Not Resolved]
  - Pain [Not Recovered/Not Resolved]
  - Skin exfoliation [Not Recovered/Not Resolved]
  - Hot flush [Recovered/Resolved]
  - Swelling [Not Recovered/Not Resolved]
  - Amnesia [Not Recovered/Not Resolved]
  - Laziness [Recovered/Resolved]
  - Back pain [Recovered/Resolved]
